FAERS Safety Report 5333372-4 (Version None)
Quarter: 2007Q2

REPORT INFORMATION
  Report Type: 
  Country: None (occurrence: None)
  Receive Date: 20070524
  Receipt Date: 20070522
  Transmission Date: 20071010
  Serious: Yes (Death, Hospitalization, Other)
  Sender: FDA-Public Use
  Company Number: CA-BRISTOL-MYERS SQUIBB COMPANY-13744784

PATIENT
  Age: 70 Year
  Sex: Female

DRUGS (10)
  1. ORENCIA [Suspect]
     Indication: RHEUMATOID ARTHRITIS
     Route: 042
     Dates: end: 20070308
  2. METHOTREXATE [Concomitant]
  3. TYLENOL W/ CODEINE [Concomitant]
  4. FENFLURAMINE [Concomitant]
  5. PLAVIX [Concomitant]
  6. FLUOXETINE [Concomitant]
  7. NORVASC [Concomitant]
  8. CELEBREX [Concomitant]
  9. ATENOLOL [Concomitant]
  10. FOLIC ACID [Concomitant]

REACTIONS (2)
  - CAROTID ARTERIAL EMBOLUS [None]
  - CEREBROVASCULAR ACCIDENT [None]
